FAERS Safety Report 17880119 (Version 13)
Quarter: 2021Q2

REPORT INFORMATION
  Report Type: Report from Study
  Country: US (occurrence: US)
  Receive Date: 20200610
  Receipt Date: 20210521
  Transmission Date: 20210717
  Serious: Yes (Life-Threatening, Hospitalization, Other)
  Sender: FDA-Public Use
  Company Number: US-SHIRE-US201921810AA

PATIENT
  Sex: Female

DRUGS (38)
  1. LANADELUMAB [Suspect]
     Active Substance: LANADELUMAB
     Indication: HEREDITARY ANGIOEDEMA
     Dosage: 300 MILLIGRAM, Q2WEEKS
     Route: 058
     Dates: start: 201810
  2. CINRYZE [Suspect]
     Active Substance: HUMAN C1-ESTERASE INHIBITOR
     Dosage: 1000 INTERNATIONAL UNIT EVERY TWO DAYS
     Route: 042
     Dates: start: 20190426
  3. FIRAZYR [Suspect]
     Active Substance: ICATIBANT ACETATE
     Indication: IMMUNE SYSTEM DISORDER
     Dosage: 30 MILLIGRAM, AS REQD
     Route: 058
     Dates: start: 20190410
  4. LANADELUMAB [Suspect]
     Active Substance: LANADELUMAB
     Dosage: 300 MILLIGRAM, Q2WEEKS
     Route: 058
     Dates: start: 20181107
  5. CINRYZE [Suspect]
     Active Substance: HUMAN C1-ESTERASE INHIBITOR
     Dosage: 1000 INTERNATIONAL UNIT EVERY OTHER DAY, EVERY 2 DAYS
     Route: 042
     Dates: start: 20150429
  6. CINRYZE [Suspect]
     Active Substance: HUMAN C1-ESTERASE INHIBITOR
     Dosage: 1000 INTERNATIONAL UNIT, QOD
     Route: 042
     Dates: start: 20160422
  7. KALBITOR [Suspect]
     Active Substance: ECALLANTIDE
     Indication: HEREDITARY ANGIOEDEMA
     Dosage: 30 MILLIGRAM, AS REQD
     Route: 058
     Dates: start: 20170602
  8. MORPHINE [Concomitant]
     Active Substance: MORPHINE
     Indication: PAIN MANAGEMENT
  9. LANADELUMAB [Suspect]
     Active Substance: LANADELUMAB
     Indication: IMMUNE SYSTEM DISORDER
     Dosage: 300 MILLIGRAM, Q2WEEKS
     Route: 058
     Dates: start: 2020
  10. CINRYZE [Suspect]
     Active Substance: HUMAN C1-ESTERASE INHIBITOR
     Dosage: 1000 INTERNATIONAL UNIT EVERY OTHER DAY, EVERY 2 DAYS
     Route: 042
     Dates: start: 20150429
  11. CINRYZE [Suspect]
     Active Substance: HUMAN C1-ESTERASE INHIBITOR
     Indication: IMMUNE SYSTEM DISORDER
     Dosage: 1000 INTERNATIONAL UNIT, QOD
     Route: 042
     Dates: start: 20150428
  12. CINRYZE [Suspect]
     Active Substance: HUMAN C1-ESTERASE INHIBITOR
     Dosage: 1000 INTERNATIONAL UNIT EVERY OTHER DAY, EVERY 2 DAYS
     Route: 042
     Dates: start: 20150429
  13. CINRYZE [Suspect]
     Active Substance: HUMAN C1-ESTERASE INHIBITOR
     Dosage: 1000 INTERNATIONAL UNIT EVERY OTHER DAY
     Route: 042
     Dates: start: 20150605
  14. CINRYZE [Suspect]
     Active Substance: HUMAN C1-ESTERASE INHIBITOR
     Dosage: 1000 INTERNATIONAL UNIT, QOD
     Route: 042
     Dates: start: 20160330
  15. CINRYZE [Suspect]
     Active Substance: HUMAN C1-ESTERASE INHIBITOR
     Dosage: 1000 INTERNATIONAL UNIT, EVERY 2 DAYS
     Route: 042
     Dates: start: 20150102
  16. FRESH FROZEN PLASMA [Concomitant]
     Active Substance: HUMAN PLASMA
     Indication: PAIN MANAGEMENT
  17. LANADELUMAB [Suspect]
     Active Substance: LANADELUMAB
     Dosage: 300 MILLIGRAM, Q2WEEKS
     Route: 058
     Dates: start: 20181009
  18. CINRYZE [Suspect]
     Active Substance: HUMAN C1-ESTERASE INHIBITOR
     Indication: IMMUNE SYSTEM DISORDER
     Dosage: 1000 INTERNATIONAL UNIT, QOD
     Route: 042
     Dates: start: 20150428
  19. CINRYZE [Suspect]
     Active Substance: HUMAN C1-ESTERASE INHIBITOR
     Dosage: 1000 INTERNATIONAL UNIT, QOD
     Route: 042
     Dates: start: 20160330
  20. CINRYZE [Suspect]
     Active Substance: HUMAN C1-ESTERASE INHIBITOR
     Dosage: 1000 INTERNATIONAL UNIT, QOD
     Route: 042
     Dates: start: 20160422
  21. LANADELUMAB [Suspect]
     Active Substance: LANADELUMAB
     Dosage: 300 MILLIGRAM, Q2WEEKS
     Route: 058
     Dates: start: 20200612
  22. CINRYZE [Suspect]
     Active Substance: HUMAN C1-ESTERASE INHIBITOR
     Indication: IMMUNE SYSTEM DISORDER
     Dosage: 1000 INTERNATIONAL UNIT, QOD
     Route: 042
     Dates: start: 20150428
  23. CINRYZE [Suspect]
     Active Substance: HUMAN C1-ESTERASE INHIBITOR
     Dosage: 1000 UNITS; OTHER (EVERY OTHER DAY)
     Route: 042
     Dates: start: 20150428
  24. FIRAZYR [Suspect]
     Active Substance: ICATIBANT ACETATE
     Indication: HEREDITARY ANGIOEDEMA
     Dosage: 30 MILLIGRAM, AS REQD
     Route: 058
     Dates: start: 20140526
  25. FIRAZYR [Suspect]
     Active Substance: ICATIBANT ACETATE
     Indication: IMMUNE SYSTEM DISORDER
     Dosage: 30 MILLIGRAM, AS REQD
     Route: 058
     Dates: start: 20190410
  26. CINRYZE [Suspect]
     Active Substance: HUMAN C1-ESTERASE INHIBITOR
     Dosage: 1000 INTERNATIONAL UNIT EVERY OTHER DAY
     Route: 042
     Dates: start: 20150605
  27. CINRYZE [Suspect]
     Active Substance: HUMAN C1-ESTERASE INHIBITOR
     Dosage: 1000 INTERNATIONAL UNIT EVERY TWO DAYS
     Route: 042
     Dates: start: 20190426
  28. CINRYZE [Suspect]
     Active Substance: HUMAN C1-ESTERASE INHIBITOR
     Dosage: 1000 UNITS; OTHER (EVERY OTHER DAY)
     Route: 042
     Dates: start: 20150428
  29. CINRYZE [Suspect]
     Active Substance: HUMAN C1-ESTERASE INHIBITOR
     Dosage: 1000 INTERNATIONAL UNIT, QOD
     Route: 042
     Dates: start: 20160422
  30. FIRAZYR [Suspect]
     Active Substance: ICATIBANT ACETATE
     Indication: HEREDITARY ANGIOEDEMA
     Dosage: 30 MILLIGRAM, AS REQD
     Route: 058
     Dates: start: 20140526
  31. KALBITOR [Suspect]
     Active Substance: ECALLANTIDE
     Indication: IMMUNE SYSTEM DISORDER
     Dosage: 30 MILLIGRAM, AS REQD
     Route: 058
     Dates: start: 20190422
  32. LANADELUMAB [Suspect]
     Active Substance: LANADELUMAB
     Dosage: 300 MILLIGRAM, Q2WEEKS
     Route: 058
     Dates: start: 202006
  33. CINRYZE [Suspect]
     Active Substance: HUMAN C1-ESTERASE INHIBITOR
     Dosage: 1000 INTERNATIONAL UNIT EVERY OTHER DAY
     Route: 042
     Dates: start: 20150605
  34. CINRYZE [Suspect]
     Active Substance: HUMAN C1-ESTERASE INHIBITOR
     Dosage: 1000 INTERNATIONAL UNIT EVERY TWO DAYS
     Route: 042
     Dates: start: 20190426
  35. CINRYZE [Suspect]
     Active Substance: HUMAN C1-ESTERASE INHIBITOR
     Dosage: 1000 UNITS; OTHER (EVERY OTHER DAY)
     Route: 042
     Dates: start: 20150428
  36. CINRYZE [Suspect]
     Active Substance: HUMAN C1-ESTERASE INHIBITOR
     Dosage: 1000 INTERNATIONAL UNIT, QOD
     Route: 042
     Dates: start: 20160330
  37. CINRYZE [Suspect]
     Active Substance: HUMAN C1-ESTERASE INHIBITOR
     Dosage: 1000 INTERNATIONAL UNIT, EVERY 2 DAYS
     Route: 042
     Dates: start: 20150102
  38. CINRYZE [Suspect]
     Active Substance: HUMAN C1-ESTERASE INHIBITOR
     Dosage: 1000 INTERNATIONAL UNIT, EVERY 2 DAYS
     Route: 042
     Dates: start: 20150102

REACTIONS (4)
  - Hereditary angioedema [Recovered/Resolved]
  - Crohn^s disease [Not Recovered/Not Resolved]
  - Pain [Unknown]
  - Inappropriate schedule of product administration [Unknown]
